FAERS Safety Report 10452745 (Version 1)
Quarter: 2014Q3

REPORT INFORMATION
  Report Type: Spontaneous
  Country: US (occurrence: US)
  Receive Date: 20140915
  Receipt Date: 20140915
  Transmission Date: 20150326
  Serious: Yes (Hospitalization)
  Sender: FDA-Public Use
  Company Number: US-TARO PHARMACEUTICALS U.S.A., INC-2014SUN02067

PATIENT
  Age: 16 Year
  Sex: Female

DRUGS (3)
  1. LEVETIRACETAM. [Suspect]
     Active Substance: LEVETIRACETAM
     Indication: SELF INJURIOUS BEHAVIOUR
     Route: 065
  2. LACOSAMIDE [Suspect]
     Active Substance: LACOSAMIDE
     Indication: SELF INJURIOUS BEHAVIOUR
     Dosage: 4.5 G, UNK
     Route: 065
  3. CYCLOBENZAPRINE [Suspect]
     Active Substance: CYCLOBENZAPRINE
     Indication: SELF INJURIOUS BEHAVIOUR
     Dosage: 120 MG, UNK

REACTIONS (6)
  - Cardiac arrest [Recovered/Resolved]
  - Overdose [Unknown]
  - Generalised tonic-clonic seizure [Unknown]
  - Ventricular tachycardia [Unknown]
  - Intentional self-injury [None]
  - Electrocardiogram QRS complex prolonged [Recovered/Resolved]
